FAERS Safety Report 6707941-0 (Version None)
Quarter: 2010Q2

REPORT INFORMATION
  Report Type: 
  Country: None (occurrence: None)
  Receive Date: 20100428
  Receipt Date: 20100414
  Transmission Date: 20101027
  Serious: Yes (Other)
  Sender: FDA-Public Use
  Company Number: 2010AP000690

PATIENT
  Age: 4 Year
  Sex: Female

DRUGS (2)
  1. LAMOTRIGINE [Suspect]
     Indication: ABNORMAL BEHAVIOUR
     Dosage: 25 MG; QD, 125 MG; QD, 50 MG; QD
  2. LAMOTRIGINE [Suspect]
     Indication: CONVULSION
     Dosage: 25 MG; QD, 125 MG; QD, 50 MG; QD

REACTIONS (5)
  - AGGRESSION [None]
  - HALLUCINATION, AUDITORY [None]
  - INSOMNIA [None]
  - PETIT MAL EPILEPSY [None]
  - PSYCHOMOTOR HYPERACTIVITY [None]
